FAERS Safety Report 21069182 (Version 2)
Quarter: 2023Q1

REPORT INFORMATION
  Report Type: Spontaneous
  Country: CA (occurrence: CA)
  Receive Date: 20220712
  Receipt Date: 20230131
  Transmission Date: 20230417
  Serious: Yes (Life-Threatening, Hospitalization, Disabling, Other)
  Sender: FDA-Public Use
  Company Number: E2B_05033017

PATIENT
  Sex: Female

DRUGS (6)
  1. TRAMADOL HYDROCHLORIDE [Suspect]
     Active Substance: TRAMADOL HYDROCHLORIDE
     Indication: Pain
     Route: 048
  2. ACETAMINOPHEN\OXYCODONE HYDROCHLORIDE [Suspect]
     Active Substance: ACETAMINOPHEN\OXYCODONE HYDROCHLORIDE
     Indication: Pain
     Route: 048
  3. HYDROMORPHONE [Suspect]
     Active Substance: HYDROMORPHONE
     Indication: Pain
     Route: 048
  4. OXYCODONE HYDROCHLORIDE [Suspect]
     Active Substance: OXYCODONE HYDROCHLORIDE
     Indication: Pain
     Route: 048
  5. OXYCONTIN [Suspect]
     Active Substance: OXYCODONE HYDROCHLORIDE
     Indication: Pain
     Route: 048
  6. OXYCODONE HYDROCHLORIDE [Suspect]
     Active Substance: OXYCODONE HYDROCHLORIDE
     Indication: Pain

REACTIONS (12)
  - Overdose [Unknown]
  - Physical disability [Recovered/Resolved with Sequelae]
  - Type 1 diabetes mellitus [Unknown]
  - Unevaluable event [Unknown]
  - Abortion spontaneous [Unknown]
  - Coma [Unknown]
  - Drug dependence [Unknown]
  - Drug withdrawal syndrome [Recovered/Resolved with Sequelae]
  - Emotional distress [Recovered/Resolved with Sequelae]
  - Maternal exposure during pregnancy [Recovered/Resolved with Sequelae]
  - Menopause [Unknown]
  - Mental disability [Recovered/Resolved with Sequelae]
